FAERS Safety Report 20884877 (Version 1)
Quarter: 2022Q2

REPORT INFORMATION
  Report Type: Spontaneous
  Country: US (occurrence: US)
  Receive Date: 20220527
  Receipt Date: 20220527
  Transmission Date: 20220721
  Serious: No
  Sender: FDA-Public Use
  Company Number: US-BAYER-2022A075562

PATIENT
  Age: 82 Year
  Sex: Female

DRUGS (1)
  1. MIRALAX [Suspect]
     Active Substance: POLYETHYLENE GLYCOL 3350
     Dates: start: 20220202, end: 20220520

REACTIONS (2)
  - Abnormal faeces [Recovering/Resolving]
  - Wrong technique in product usage process [None]

NARRATIVE: CASE EVENT DATE: 20220207
